FAERS Safety Report 4915314-6 (Version None)
Quarter: 2006Q1

REPORT INFORMATION
  Report Type: 
  Country: None (occurrence: None)
  Receive Date: 20060217
  Receipt Date: 20060127
  Transmission Date: 20060701
  Serious: Yes (Other)
  Sender: FDA-Public Use
  Company Number: SE-GLAXOSMITHKLINE-B0408670A

PATIENT
  Age: 38 Year
  Sex: Female
  Weight: 50 kg

DRUGS (3)
  1. REQUIP [Suspect]
     Indication: RESTLESS LEGS SYNDROME
     Dosage: .25MG SEE DOSAGE TEXT
     Route: 048
     Dates: start: 20050530, end: 20051006
  2. SIFROL [Concomitant]
     Route: 065
  3. LEVAXIN [Concomitant]
     Indication: HYPOTHYROIDISM
     Dosage: .15MG PER DAY
     Route: 065
     Dates: start: 20050605

REACTIONS (1)
  - TRANSAMINASES INCREASED [None]
